FAERS Safety Report 11450708 (Version 1)
Quarter: 2015Q3

REPORT INFORMATION
  Report Type: Spontaneous
  Country: US (occurrence: US)
  Receive Date: 20150903
  Receipt Date: 20150903
  Transmission Date: 20151125
  Serious: No
  Sender: FDA-Public Use
  Company Number: US-ROCHE-1028662

PATIENT
  Sex: Female

DRUGS (2)
  1. PEGASYS [Suspect]
     Active Substance: PEGINTERFERON ALFA-2A
     Indication: HEPATITIS C
     Route: 058
     Dates: start: 20110914, end: 20120404
  2. COPEGUS [Suspect]
     Active Substance: RIBAVIRIN
     Indication: HEPATITIS C
     Dosage: 800 MG DAILY DIVIDED DOSE FOR 48 WEEK LENGTH OF THERAPY
     Route: 048
     Dates: start: 20110914, end: 20120404

REACTIONS (13)
  - Dry skin [Unknown]
  - Pruritus [Unknown]
  - White blood cell count decreased [Unknown]
  - Pyrexia [Unknown]
  - Fatigue [Unknown]
  - Diarrhoea [Unknown]
  - Insomnia [Unknown]
  - Chills [Unknown]
  - Hyperhidrosis [Unknown]
  - Pain [Unknown]
  - Menorrhagia [Not Recovered/Not Resolved]
  - Irritability [Unknown]
  - Nausea [Unknown]
